FAERS Safety Report 24807698 (Version 1)
Quarter: 2025Q1

REPORT INFORMATION
  Report Type: Report from Study
  Country: CN (occurrence: CN)
  Receive Date: 20250105
  Receipt Date: 20250105
  Transmission Date: 20250409
  Serious: Yes (Other)
  Sender: ABBVIE
  Company Number: CN-JNJFOC-20241278224

PATIENT

DRUGS (1)
  1. IBRUTINIB [Suspect]
     Active Substance: IBRUTINIB
     Indication: Lymphocytic lymphoma
     Route: 048

REACTIONS (4)
  - Supraventricular extrasystoles [Unknown]
  - Drug intolerance [Unknown]
  - Haemorrhage [Unknown]
  - Ventricular extrasystoles [Unknown]
